FAERS Safety Report 9165020 (Version 1)
Quarter: 2013Q1

REPORT INFORMATION
  Report Type: Report from Study
  Country: JP (occurrence: JP)
  Receive Date: 20130315
  Receipt Date: 20130315
  Transmission Date: 20140127
  Serious: Yes (Hospitalization)
  Sender: FDA-Public Use
  Company Number: JP-PFIZER INC-2013081989

PATIENT
  Age: 79 Year
  Sex: Male

DRUGS (8)
  1. ESTRACYT [Suspect]
     Indication: PROSTATE CANCER
     Dosage: 626.8 MG, 1X/DAY
     Route: 048
     Dates: start: 20110905, end: 20111122
  2. LOXONIN [Concomitant]
     Dosage: UNK
     Dates: start: 20110902
  3. SELBEX [Concomitant]
     Dosage: UNK
     Dates: start: 20110907
  4. MS-TWICELON [Concomitant]
     Dosage: UNK
     Dates: start: 20110922, end: 20110924
  5. DUROTEP [Concomitant]
     Dosage: UNK
     Dates: start: 20110924
  6. GLYCYRON [Concomitant]
     Dosage: UNK
     Dates: start: 20111017, end: 20111122
  7. LEUPLIN [Concomitant]
     Dosage: UNK
     Dates: start: 20080725
  8. ZOMETA [Concomitant]
     Dosage: UNK
     Dates: start: 20110107

REACTIONS (3)
  - Ascites [Not Recovered/Not Resolved]
  - Oedema [Not Recovered/Not Resolved]
  - Pleural effusion [Not Recovered/Not Resolved]
